FAERS Safety Report 15103696 (Version 1)
Quarter: 2018Q3

REPORT INFORMATION
  Report Type: Spontaneous
  Country: US (occurrence: US)
  Receive Date: 20180703
  Receipt Date: 20180703
  Transmission Date: 20181010
  Serious: No
  Sender: FDA-Public Use
  Company Number: US-ASTRAZENECA-2018SE83323

PATIENT
  Age: 25366 Day
  Sex: Female
  Weight: 68 kg

DRUGS (5)
  1. ESTROGEN [Concomitant]
     Active Substance: ESTROGENS
     Indication: HOT FLUSH
     Dosage: 0.5MG UNKNOWN
     Route: 048
     Dates: start: 1997
  2. BEVESPI AEROSPHERE [Suspect]
     Active Substance: FORMOTEROL FUMARATE\GLYCOPYRROLATE
     Indication: CHRONIC OBSTRUCTIVE PULMONARY DISEASE
     Dosage: 9/4.8 MCG, TWO PUFFS, TWICE DAILY,
     Route: 055
     Dates: start: 20180412, end: 20180609
  3. ZOMIG [Suspect]
     Active Substance: ZOLMITRIPTAN
     Indication: MIGRAINE
     Dosage: 5.0MG AS REQUIRED
     Route: 048
     Dates: start: 2005
  4. PROGESTERONE. [Concomitant]
     Active Substance: PROGESTERONE
     Indication: HOT FLUSH
     Dosage: 2.5MG UNKNOWN
     Route: 048
     Dates: start: 1997
  5. ENORA [Concomitant]
     Indication: CHRONIC OBSTRUCTIVE PULMONARY DISEASE
     Dosage: 62.5 MCG/25MCG 1 PUFF PER DAY.
     Route: 055
     Dates: start: 20180614

REACTIONS (7)
  - Back pain [Recovered/Resolved]
  - Peripheral swelling [Recovered/Resolved]
  - Intentional product misuse [Recovered/Resolved]
  - Joint swelling [Recovered/Resolved]
  - Pain in extremity [Recovered/Resolved]
  - Gait disturbance [Recovered/Resolved]
  - Chronic obstructive pulmonary disease [Not Recovered/Not Resolved]

NARRATIVE: CASE EVENT DATE: 20180412
